FAERS Safety Report 6955301-X (Version None)
Quarter: 2010Q3

REPORT INFORMATION
  Report Type: 
  Country: None (occurrence: None)
  Receive Date: 20100830
  Receipt Date: 20100824
  Transmission Date: 20110219
  Serious: Yes (Death, Other)
  Sender: FDA-Public Use
  Company Number: PHFR2010GB00540

PATIENT
  Sex: Male
  Weight: 127 kg

DRUGS (4)
  1. CLOZARIL [Suspect]
     Indication: SCHIZOPHRENIA
     Dosage: 350 MG, UNK
     Dates: start: 20031001
  2. CLOZARIL [Suspect]
     Dosage: UNK
     Dates: start: 20070703
  3. CLOZAPINE [Concomitant]
     Indication: SCHIZOPHRENIA
     Dosage: UNK
     Dates: end: 20041101
  4. ESCITALOPRAM [Concomitant]
     Dosage: 10 MG, UNK

REACTIONS (19)
  - AORTIC ARTERIOSCLEROSIS [None]
  - ARTERIOSCLEROSIS CORONARY ARTERY [None]
  - CEREBRAL ARTERIOSCLEROSIS [None]
  - CEREBRAL ATROPHY [None]
  - DILATATION ATRIAL [None]
  - HEPATIC NECROSIS [None]
  - HEPATIC STEATOSIS [None]
  - INCREASED BRONCHIAL SECRETION [None]
  - MYOCARDIAL INFARCTION [None]
  - NARCOTIC INTOXICATION [None]
  - NEEDLE TRACK MARKS [None]
  - OVERDOSE [None]
  - OVERGROWTH BACTERIAL [None]
  - PERICARDIAL EFFUSION [None]
  - PULMONARY CONGESTION [None]
  - PULMONARY NECROSIS [None]
  - PULMONARY OEDEMA [None]
  - RENAL NECROSIS [None]
  - VESSEL PUNCTURE SITE HAEMATOMA [None]
